FAERS Safety Report 9526762 (Version 1)
Quarter: 2013Q3

REPORT INFORMATION
  Report Type: Spontaneous
  Country: US (occurrence: US)
  Receive Date: 20130916
  Receipt Date: 20130916
  Transmission Date: 20140515
  Serious: Yes (Other)
  Sender: FDA-Public Use
  Company Number: US-GLAXOSMITHKLINE-A1036153A

PATIENT
  Age: 74 Year
  Sex: Male

DRUGS (1)
  1. ALKERAN [Suspect]
     Indication: LEUKAEMIA
     Dosage: 2MGD PER DAY
     Route: 048
     Dates: start: 201304

REACTIONS (3)
  - Transfusion [Not Recovered/Not Resolved]
  - Platelet transfusion [Not Recovered/Not Resolved]
  - Incorrect product storage [Not Recovered/Not Resolved]
